FAERS Safety Report 8091499-0 (Version None)
Quarter: 2012Q1

REPORT INFORMATION
  Report Type: 
  Country: None (occurrence: None)
  Receive Date: 20120131
  Receipt Date: 20120127
  Transmission Date: 20120608
  Serious: No
  Sender: FDA-Public Use
  Company Number: US-PFIZER INC-2012023610

PATIENT
  Sex: Female
  Weight: 99.8 kg

DRUGS (5)
  1. LASIX [Concomitant]
     Indication: FLUID RETENTION
     Dosage: 3 MG, DAILY
     Route: 048
  2. TRAZODONE [Concomitant]
     Indication: SLEEP DISORDER
     Dosage: 300 MG, DAILY
     Route: 048
  3. FUROSEMIDE [Concomitant]
     Indication: CARDIAC DISORDER
     Dosage: 40 MG, DAILY
     Route: 048
  4. CLONAZEPAM [Concomitant]
     Indication: ANXIETY
     Dosage: 1 MG, 3X/DAY
  5. CHANTIX [Suspect]
     Indication: SMOKING CESSATION THERAPY
     Dosage: 0.5 MG, DAILY
     Dates: start: 20120116

REACTIONS (1)
  - GINGIVAL PAIN [None]
